FAERS Safety Report 6838874-7 (Version None)
Quarter: 2010Q3

REPORT INFORMATION
  Report Type: 
  Country: None (occurrence: None)
  Receive Date: 20100713
  Receipt Date: 20070818
  Transmission Date: 20110219
  Serious: Yes (Other)
  Sender: FDA-Public Use
  Company Number: US-PFIZER INC-2007050450

PATIENT
  Sex: Female
  Weight: 59.4 kg

DRUGS (7)
  1. CHANTIX [Suspect]
     Indication: SMOKING CESSATION THERAPY
     Dates: start: 20070601, end: 20070617
  2. KLONOPIN [Concomitant]
  3. SIMVASTATIN [Concomitant]
  4. MULTI-VITAMINS [Concomitant]
  5. ESTER-C [Concomitant]
  6. GLUCOSAMINE W/CHONDROITIN SULFATES [Concomitant]
  7. ACETYLSALICYLIC ACID [Concomitant]

REACTIONS (13)
  - ACTIVITIES OF DAILY LIVING IMPAIRED [None]
  - BALANCE DISORDER [None]
  - CEREBROVASCULAR ACCIDENT [None]
  - DISORIENTATION [None]
  - DIZZINESS [None]
  - DRY MOUTH [None]
  - FEELING ABNORMAL [None]
  - NASAL DRYNESS [None]
  - NERVOUSNESS [None]
  - PALPITATIONS [None]
  - PANIC ATTACK [None]
  - SPEECH DISORDER [None]
  - VISUAL IMPAIRMENT [None]
